FAERS Safety Report 6377528-0 (Version None)
Quarter: 2009Q3

REPORT INFORMATION
  Report Type: 
  Country: None (occurrence: None)
  Receive Date: 20090925
  Receipt Date: 20090917
  Transmission Date: 20100115
  Serious: Yes (Other)
  Sender: FDA-Public Use
  Company Number: US-MERCK-0909USA02387

PATIENT
  Age: 79 Year
  Sex: Female

DRUGS (6)
  1. FOSAMAX PLUS D [Suspect]
     Indication: ARTHRITIS
     Route: 048
     Dates: start: 20040101, end: 20090424
  2. SIMVASTATIN [Concomitant]
     Route: 048
  3. ASPIRIN [Concomitant]
     Route: 065
  4. ASTELIN [Concomitant]
     Route: 065
  5. OMNARIS [Concomitant]
     Route: 065
  6. SINGULAIR [Concomitant]
     Route: 048

REACTIONS (7)
  - ALOPECIA [None]
  - FALL [None]
  - LYMPHOMA [None]
  - NAIL DISORDER [None]
  - RESORPTION BONE INCREASED [None]
  - VIRAL INFECTION [None]
  - WEIGHT DECREASED [None]
